FAERS Safety Report 7306581-2 (Version None)
Quarter: 2011Q1

REPORT INFORMATION
  Report Type: 
  Country: None (occurrence: None)
  Receive Date: 20110222
  Receipt Date: 20110210
  Transmission Date: 20110831
  Serious: Yes (Hospitalization)
  Sender: FDA-Public Use
  Company Number: US-ROCHE-735375

PATIENT
  Sex: Female
  Weight: 66.7 kg

DRUGS (5)
  1. ACCUTANE [Suspect]
     Route: 065
     Dates: start: 19980101, end: 19980501
  2. DESOGEN [Concomitant]
     Dosage: DAILY
  3. ACCUTANE [Suspect]
     Route: 065
     Dates: end: 19980601
  4. ADVIL [Concomitant]
     Dosage: EVERY MONTH
  5. ACCUTANE [Suspect]
     Indication: ACNE
     Route: 065
     Dates: start: 19971201

REACTIONS (5)
  - ABDOMINAL PAIN [None]
  - COLITIS ULCERATIVE [None]
  - NAUSEA [None]
  - RECTAL HAEMORRHAGE [None]
  - LEUKOCYTOSIS [None]
